FAERS Safety Report 6085791-9 (Version None)
Quarter: 2009Q1

REPORT INFORMATION
  Report Type: 
  Country: None (occurrence: None)
  Receive Date: 20090220
  Receipt Date: 20080804
  Transmission Date: 20090719
  Serious: No
  Sender: FDA-Public Use
  Company Number: US-BRISTOL-MYERS SQUIBB COMPANY-14288443

PATIENT
  Age: 63 Year
  Sex: Female
  Weight: 79 kg

DRUGS (5)
  1. MITOTANE [Suspect]
     Indication: ADRENOCORTICAL CARCINOMA
     Dosage: STARTED BEFORE JAN07.NOT TAKEN FOR 4 MON.500MG 3 TABS IN AM+2 TABS IN PM.STRENGTH=500MG,FORM= TABS
  2. DEXAMETHASONE [Concomitant]
  3. ZOFRAN [Concomitant]
  4. PROTONIX [Concomitant]
  5. WELLBUTRIN [Concomitant]

REACTIONS (1)
  - DRUG LEVEL THERAPEUTIC [None]
